FAERS Safety Report 18918623 (Version 1)
Quarter: 2021Q1

REPORT INFORMATION
  Report Type: Spontaneous
  Country: CN (occurrence: CN)
  Receive Date: 20210219
  Receipt Date: 20210219
  Transmission Date: 20210420
  Serious: Yes (Other)
  Sender: FDA-Public Use
  Company Number: CN-B.I. PHARMACEUTICALS,INC./RIDGEFIELD-2021-BI-083435

PATIENT
  Age: 48 Year

DRUGS (10)
  1. AFATINIB [Suspect]
     Active Substance: AFATINIB
     Indication: PARKINSON^S DISEASE
  2. ENDOSTAR [Concomitant]
     Active Substance: ENDOSTATIN
     Indication: LUNG NEOPLASM MALIGNANT
  3. BRIGATINIB [Concomitant]
     Active Substance: BRIGATINIB
     Indication: LUNG NEOPLASM MALIGNANT
  4. CETUXIMAB. [Concomitant]
     Active Substance: CETUXIMAB
     Indication: LUNG ADENOCARCINOMA
  5. ENDOSTAR [Concomitant]
     Active Substance: ENDOSTATIN
     Indication: LUNG ADENOCARCINOMA
     Dosage: ANTI?ANGIOGENIC DRUG, 15 MG PER DAY FOR 2 WEEKS IN EVERY 3 WEEKS)
  6. AFATINIB [Suspect]
     Active Substance: AFATINIB
     Indication: LUNG ADENOCARCINOMA
  7. AFATINIB [Suspect]
     Active Substance: AFATINIB
     Indication: LUNG NEOPLASM MALIGNANT
  8. ENDOSTAR [Concomitant]
     Active Substance: ENDOSTATIN
     Indication: ANTIANGIOGENIC THERAPY
  9. BRIGATINIB [Concomitant]
     Active Substance: BRIGATINIB
     Indication: LUNG ADENOCARCINOMA
  10. CETUXIMAB. [Concomitant]
     Active Substance: CETUXIMAB
     Indication: LUNG NEOPLASM MALIGNANT

REACTIONS (3)
  - Therapy partial responder [Unknown]
  - Malignant neoplasm progression [Not Recovered/Not Resolved]
  - Rash [Not Recovered/Not Resolved]

NARRATIVE: CASE EVENT DATE: 201912
